FAERS Safety Report 23265479 (Version 1)
Quarter: 2023Q4

REPORT INFORMATION
  Report Type: Spontaneous
  Country: US (occurrence: US)
  Receive Date: 20231206
  Receipt Date: 20231206
  Transmission Date: 20240110
  Serious: No
  Sender: FDA-Public Use
  Company Number: US-STERISCIENCE B.V.-2022-ST-000557

PATIENT
  Age: 55 Year
  Sex: Female

DRUGS (2)
  1. BUPIVACAINE [Suspect]
     Active Substance: BUPIVACAINE
     Indication: Periarthritis
     Dosage: AT A FLOW RATE OF 2 ML/H
     Route: 065
  2. EPINEPHRINE [Suspect]
     Active Substance: EPINEPHRINE
     Indication: Periarthritis
     Dosage: AT A FLOW RATE OF 2 ML/H
     Route: 065

REACTIONS (2)
  - Chondrolysis [Unknown]
  - Off label use [Unknown]
